FAERS Safety Report 7267568-1 (Version None)
Quarter: 2011Q1

REPORT INFORMATION
  Report Type: 
  Country: None (occurrence: None)
  Receive Date: 20110201
  Receipt Date: 20110124
  Transmission Date: 20110831
  Serious: Yes (Hospitalization)
  Sender: FDA-Public Use
  Company Number: DE-ELI_LILLY_AND_COMPANY-DE201012002483

PATIENT
  Sex: Female

DRUGS (10)
  1. HCT [Concomitant]
     Dosage: 12.5 MG, DAILY (1/D)
  2. ASPIRIN [Concomitant]
     Dosage: 100 MG, EACH MORNING
  3. COTRIM [Concomitant]
     Dosage: UNK, 2/D
  4. DOXAZOSIN [Concomitant]
     Dosage: 2 MG, 2/D
  5. BYETTA [Suspect]
     Indication: DIABETES MELLITUS
     Dosage: 5 UG, UNKNOWN
     Route: 058
     Dates: start: 20101111, end: 20101101
  6. FLUVASTATIN [Concomitant]
     Dosage: 20 MG, DAILY (1/D)
  7. LISINOPRIL [Concomitant]
     Dosage: 1 D/F, 2/D
  8. METFORMIN HCL [Concomitant]
     Dosage: 500 MG, 2/D
  9. INSULIN B. BRAUN RATIOPHARM BASAL [Concomitant]
     Dosage: 20 IU, EACH EVENING
  10. MOXONIDIN [Concomitant]
     Dosage: 3 MG, DAILY (1/D)

REACTIONS (6)
  - OFF LABEL USE [None]
  - ABDOMINAL PAIN UPPER [None]
  - BLOOD GLUCOSE INCREASED [None]
  - URINARY TRACT INFECTION [None]
  - NAUSEA [None]
  - VOMITING [None]
